FAERS Safety Report 6771440-0 (Version None)
Quarter: 2010Q2

REPORT INFORMATION
  Report Type: 
  Country: None (occurrence: None)
  Receive Date: 20100616
  Receipt Date: 20100607
  Transmission Date: 20101027
  Serious: Yes (Other)
  Sender: FDA-Public Use
  Company Number: GB-AMGEN-QUU414030

PATIENT
  Sex: Female
  Weight: 53.5 kg

DRUGS (2)
  1. ARANESP [Suspect]
     Indication: RENAL FAILURE CHRONIC
     Route: 058
     Dates: start: 20100408
  2. VENOFER [Concomitant]
     Route: 042
     Dates: start: 20100408

REACTIONS (6)
  - GINGIVAL BLEEDING [None]
  - HYPERSENSITIVITY [None]
  - INFLUENZA LIKE ILLNESS [None]
  - MALAISE [None]
  - SKIN DISCOLOURATION [None]
  - SWELLING FACE [None]
